FAERS Safety Report 18317957 (Version 1)
Quarter: 2020Q3

REPORT INFORMATION
  Report Type: Report from Study
  Country: FR (occurrence: FR)
  Receive Date: 20200928
  Receipt Date: 20200928
  Transmission Date: 20201103
  Serious: Yes (Hospitalization, Other)
  Sender: FDA-Public Use
  Company Number: FR-BRISTOL-MYERS SQUIBB COMPANY-BMS-2020-076278

PATIENT
  Age: 70 Year
  Sex: Female

DRUGS (7)
  1. DOMPERIDONE [Concomitant]
     Active Substance: DOMPERIDONE
     Dosage: UNK
     Route: 065
     Dates: start: 2020
  2. AFINITOR [Suspect]
     Active Substance: EVEROLIMUS
     Indication: PRODUCT USED FOR UNKNOWN INDICATION
     Dosage: UNK
     Route: 065
     Dates: start: 20161024
  3. NEORECORMON [Concomitant]
     Active Substance: ERYTHROPOIETIN
     Indication: ANAEMIA
     Dosage: UNK
     Route: 065
     Dates: start: 201612, end: 2017
  4. FENOFIBRATE. [Concomitant]
     Active Substance: FENOFIBRATE
     Indication: DYSLIPIDAEMIA
     Dosage: UNK
     Route: 065
     Dates: start: 201702
  5. DOMPERIDONE [Concomitant]
     Active Substance: DOMPERIDONE
     Indication: PROPHYLAXIS OF NAUSEA AND VOMITING
     Dosage: UNK
     Route: 065
     Dates: start: 201702, end: 2018
  6. FENOFIBRATE. [Concomitant]
     Active Substance: FENOFIBRATE
     Indication: PROPHYLAXIS
  7. NIVOLUMAB [Suspect]
     Active Substance: NIVOLUMAB
     Indication: PRODUCT USED FOR UNKNOWN INDICATION
     Dosage: 3 MILLIGRAM/KILOGRAM, EVERY 15DAYS
     Route: 065
     Dates: start: 201703

REACTIONS (16)
  - Iron deficiency [Unknown]
  - Mucosal inflammation [Unknown]
  - Femur fracture [Unknown]
  - Humerus fracture [Unknown]
  - Neuralgia [Unknown]
  - Metastases to bone [Unknown]
  - Back pain [Unknown]
  - Folate deficiency [Unknown]
  - Off label use [Unknown]
  - Dry eye [Unknown]
  - Dry mouth [Unknown]
  - Pleural effusion [Unknown]
  - Depression [Unknown]
  - Osteoarthritis [Unknown]
  - Hyperthyroidism [Unknown]
  - Oesophagitis [Unknown]
